FAERS Safety Report 7670772-1 (Version None)
Quarter: 2011Q3

REPORT INFORMATION
  Report Type: 
  Country: None (occurrence: None)
  Receive Date: 20110809
  Receipt Date: 20110729
  Transmission Date: 20111222
  Serious: Yes (Hospitalization, Other)
  Sender: FDA-Public Use
  Company Number: US-SHIRE-ALL1-2011-01373

PATIENT
  Sex: Male
  Weight: 17 kg

DRUGS (2)
  1. ELAPRASE [Suspect]
     Indication: MUCOPOLYSACCHARIDOSIS II
     Dosage: 12 MG, UNKNOWN
     Route: 041
     Dates: start: 20110504
  2. ELAPRASE [Suspect]
     Dosage: 6 MG, UNKNOWN
     Route: 041
     Dates: start: 20110101

REACTIONS (11)
  - LIP SWELLING [None]
  - FLUSHING [None]
  - GENERALISED ERYTHEMA [None]
  - UPPER RESPIRATORY TRACT INFECTION [None]
  - PRURITUS [None]
  - URINE OUTPUT DECREASED [None]
  - WHEEZING [None]
  - VOMITING [None]
  - URTICARIA [None]
  - DIARRHOEA [None]
  - INFUSION RELATED REACTION [None]
